FAERS Safety Report 16722214 (Version 2)
Quarter: 2019Q4

REPORT INFORMATION
  Report Type: Report from Study
  Country: US (occurrence: US)
  Receive Date: 20190820
  Receipt Date: 20191210
  Transmission Date: 20200122
  Serious: No
  Sender: FDA-Public Use
  Company Number: PHEH2019US034162

PATIENT
  Sex: Female

DRUGS (1)
  1. COSENTYX [Suspect]
     Active Substance: SECUKINUMAB
     Indication: ANKYLOSING SPONDYLITIS
     Dosage: 150 MG, ONCE WEEKLY FOR 5 WEEKS, THEN ONCE EVERY 4 WEEKS
     Route: 058

REACTIONS (2)
  - Injection site bruising [Unknown]
  - Therapeutic response shortened [Unknown]
